FAERS Safety Report 5772258-8 (Version None)
Quarter: 2008Q2

REPORT INFORMATION
  Report Type: 
  Country: None (occurrence: None)
  Receive Date: 20080610
  Receipt Date: 20080530
  Transmission Date: 20081010
  Serious: Yes (Other)
  Sender: FDA-Public Use
  Company Number: 2008AP001066

PATIENT
  Sex: Female

DRUGS (3)
  1. GABAPENTIN [Suspect]
     Indication: CONVULSION
     Dosage: 300 MG; BID; PO; 300 MG; QID; PO
     Route: 048
     Dates: start: 20080401, end: 20080401
  2. GABAPENTIN [Suspect]
     Indication: CONVULSION
     Dosage: 300 MG; BID; PO; 300 MG; QID; PO
     Route: 048
     Dates: start: 20080401, end: 20080401
  3. LEVOTHYROXINE SODIUM [Concomitant]

REACTIONS (4)
  - DRUG INEFFECTIVE [None]
  - MUSCLE SPASMS [None]
  - MUSCLE TWITCHING [None]
  - PHARMACEUTICAL PRODUCT COMPLAINT [None]
